FAERS Safety Report 16993087 (Version 1)
Quarter: 2019Q4

REPORT INFORMATION
  Report Type: Spontaneous
  Country: US (occurrence: US)
  Receive Date: 20191105
  Receipt Date: 20191105
  Transmission Date: 20200122
  Serious: Yes (Other)
  Sender: FDA-Public Use
  Company Number: US-INFO-000874

PATIENT
  Age: 45 Year
  Sex: Male
  Weight: 99.79 kg

DRUGS (1)
  1. LEVOFLOXACIN. [Suspect]
     Active Substance: LEVOFLOXACIN
     Indication: PROSTATITIS
     Route: 065

REACTIONS (2)
  - Pancreatitis acute [Recovered/Resolved]
  - Acute febrile neutrophilic dermatosis [Recovered/Resolved]
